FAERS Safety Report 9059876 (Version 2)
Quarter: 2013Q1

REPORT INFORMATION
  Report Type: Spontaneous
  Country: US (occurrence: US)
  Receive Date: 20130212
  Receipt Date: 20130226
  Transmission Date: 20140127
  Serious: Yes (Hospitalization, Other)
  Sender: FDA-Public Use
  Company Number: US-BRISTOL-MYERS SQUIBB COMPANY-17365685

PATIENT
  Age: 67 Year
  Sex: Female
  Weight: 73 kg

DRUGS (5)
  1. METFORMIN HCL [Suspect]
     Indication: DIABETES MELLITUS
     Dosage: ALSO TAKEN AS CONMED
     Route: 048
     Dates: start: 20030306, end: 20100202
  2. ATORVASTATIN CALCIUM [Suspect]
     Route: 048
     Dates: start: 20030306
  3. LISINOPRIL [Concomitant]
     Dosage: OCULAR USE
     Dates: start: 20030306
  4. LATANOPROST [Concomitant]
     Dosage: OCULAR USE
     Dates: start: 20030306
  5. ASPIRIN [Concomitant]
     Route: 048
     Dates: start: 20110127

REACTIONS (1)
  - Polymyositis [Not Recovered/Not Resolved]
